FAERS Safety Report 5155403-7 (Version None)
Quarter: 2006Q4

REPORT INFORMATION
  Report Type: 
  Country: None (occurrence: None)
  Receive Date: 20061121
  Receipt Date: 20060907
  Transmission Date: 20070319
  Serious: Yes (Life-Threatening, Hospitalization)
  Sender: FDA-Public Use
  Company Number: DE-SANOFI-SYNTHELABO-A04200600895

PATIENT
  Sex: Male
  Weight: 84 kg

DRUGS (4)
  1. ELOXATIN [Suspect]
     Indication: BILE DUCT CANCER
     Route: 041
     Dates: start: 20060821, end: 20060821
  2. DOCITON [Concomitant]
     Indication: HYPERTENSION
     Route: 048
  3. GEMCITABINE [Suspect]
     Indication: BILE DUCT CANCER
     Route: 041
     Dates: start: 20060821, end: 20060821
  4. GEMCITABINE [Suspect]
     Route: 041
     Dates: start: 20060825, end: 20060825

REACTIONS (3)
  - ACUTE HEPATIC FAILURE [None]
  - JAUNDICE [None]
  - MALAISE [None]
